FAERS Safety Report 4564937-5 (Version None)
Quarter: 2005Q1

REPORT INFORMATION
  Report Type: 
  Country: None (occurrence: None)
  Receive Date: 20050131
  Receipt Date: 20050118
  Transmission Date: 20050727
  Serious: Yes (Death)
  Sender: FDA-Public Use
  Company Number: JP-JNJFOC-20031005980

PATIENT
  Sex: Male
  Weight: 60 kg

DRUGS (12)
  1. REMICADE [Suspect]
     Route: 041
  2. REMICADE [Suspect]
     Indication: CROHN'S DISEASE
     Route: 041
  3. PREDONINE [Concomitant]
     Route: 049
  4. ELENTAL [Concomitant]
     Route: 049
  5. ELENTAL [Concomitant]
     Route: 049
  6. SELBEX [Concomitant]
     Route: 049
  7. LAC-B [Concomitant]
     Route: 049
  8. FERROMIA [Concomitant]
     Route: 049
  9. DAIKENSHUTO [Concomitant]
     Route: 049
  10. GASMOTIN [Concomitant]
     Route: 049
  11. LOXONIN [Concomitant]
     Route: 049
  12. ENTERAL NUTRITION [Concomitant]

REACTIONS (2)
  - CONSTIPATION [None]
  - INTESTINAL OBSTRUCTION [None]
